FAERS Safety Report 17820132 (Version 1)
Quarter: 2020Q2

REPORT INFORMATION
  Report Type: Spontaneous
  Country: IT (occurrence: IT)
  Receive Date: 20200525
  Receipt Date: 20200525
  Transmission Date: 20200714
  Serious: Yes (Other)
  Sender: FDA-Public Use
  Company Number: IT-BEH-2020117645

PATIENT
  Age: 69 Year
  Sex: Female
  Weight: 73 kg

DRUGS (3)
  1. FLEBOCORTID [Concomitant]
     Active Substance: HYDROCORTISONE SODIUM SUCCINATE
     Dosage: 1 GRAM
     Route: 042
     Dates: start: 20200212, end: 20200212
  2. PRIVIGEN [Suspect]
     Active Substance: HUMAN IMMUNOGLOBULIN G
     Indication: PRODUCT USED FOR UNKNOWN INDICATION
     Dosage: 30 GRAM, QD
     Route: 042
     Dates: start: 20200212, end: 20200212
  3. PARACETAMOLO [Concomitant]
     Active Substance: ACETAMINOPHEN
     Dosage: 100 MILLIGRAM
     Route: 042
     Dates: start: 20200212, end: 20200212

REACTIONS (5)
  - Bronchospasm [Recovered/Resolved]
  - Hyperpyrexia [Recovered/Resolved]
  - Sinus node dysfunction [Recovered/Resolved]
  - Pallor [Recovered/Resolved]
  - Infusion related reaction [Recovered/Resolved]

NARRATIVE: CASE EVENT DATE: 20200212
